FAERS Safety Report 6163758-X (Version None)
Quarter: 2009Q2

REPORT INFORMATION
  Report Type: 
  Country: None (occurrence: None)
  Receive Date: 20090420
  Receipt Date: 20090420
  Transmission Date: 20091009
  Serious: Yes (Other)
  Sender: FDA-Public Use
  Company Number: None

PATIENT
  Age: 63 Year
  Sex: Male
  Weight: 109.7705 kg

DRUGS (8)
  1. ZOLADEX [Suspect]
     Indication: PSYCHIATRIC INVESTIGATION
     Dosage: 1 TIME, 10.8 MG SC
     Route: 058
     Dates: start: 20080424
  2. ANDROGEL [Concomitant]
  3. ARIMIDEX [Concomitant]
  4. TOPOROL XL [Concomitant]
  5. PRAVASTATIN [Concomitant]
  6. OMEPRAZOLE [Concomitant]
  7. MULTI-VITAMIN [Concomitant]
  8. FISH OIL CAPSULES [Concomitant]

REACTIONS (2)
  - HYPOGONADISM [None]
  - HYPOTHALAMO-PITUITARY DISORDER [None]
